FAERS Safety Report 15406798 (Version 1)
Quarter: 2018Q3

REPORT INFORMATION
  Report Type: Spontaneous
  Country: KZ (occurrence: KZ)
  Receive Date: 20180920
  Receipt Date: 20180920
  Transmission Date: 20181010
  Serious: Yes (Death, Other)
  Sender: FDA-Public Use
  Company Number: KZ-VIIV HEALTHCARE LIMITED-KZ2018GSK169904

PATIENT
  Age: 66 Year
  Sex: Male

DRUGS (2)
  1. TIVICAY [Suspect]
     Active Substance: DOLUTEGRAVIR SODIUM
     Indication: HIV INFECTION
     Dosage: 50 MG, BID
     Dates: start: 20180221, end: 20180821
  2. RIFAMPICIN [Concomitant]
     Active Substance: RIFAMPIN
     Indication: TUBERCULOSIS
     Dosage: UNK
     Dates: start: 20180403, end: 20180821

REACTIONS (1)
  - Gastric cancer stage III [Fatal]
